FAERS Safety Report 4725238-5 (Version None)
Quarter: 2005Q3

REPORT INFORMATION
  Report Type: 
  Country: None (occurrence: None)
  Receive Date: 20050726
  Receipt Date: 20020620
  Transmission Date: 20060218
  Serious: Yes (Death, Hospitalization, Other)
  Sender: FDA-Public Use
  Company Number: US-AMGEN-US014428

PATIENT
  Sex: Female
  Weight: 47.2 kg

DRUGS (13)
  1. KINERET [Suspect]
     Indication: RHEUMATOID ARTHRITIS
     Route: 058
     Dates: start: 20020302, end: 20020515
  2. DARVOCET-N 100 [Concomitant]
  3. ELAVIL [Concomitant]
  4. KETOROLAC TROMETHAMINE [Concomitant]
  5. PRILOSEC [Concomitant]
  6. DIOVAN [Concomitant]
  7. ADALAT [Concomitant]
  8. ARAVA [Concomitant]
     Route: 048
     Dates: start: 20011001, end: 20020601
  9. PREDNISONE [Concomitant]
  10. PREDNISONE [Concomitant]
     Dates: start: 20020602, end: 20020607
  11. PREDNISONE [Concomitant]
     Dates: start: 20020608
  12. SULFASALAZINE [Concomitant]
     Dates: start: 19960101, end: 20020911
  13. BEXTRA [Concomitant]

REACTIONS (6)
  - BRONCHOPULMONARY ASPERGILLOSIS [None]
  - HYPERTENSION [None]
  - LUMBAR HERNIA [None]
  - PNEUMONIA [None]
  - RENAL FAILURE [None]
  - RESPIRATORY ARREST [None]
